FAERS Safety Report 17190949 (Version 1)
Quarter: 2019Q4

REPORT INFORMATION
  Report Type: Spontaneous
  Country: US (occurrence: US)
  Receive Date: 20191223
  Receipt Date: 20191223
  Transmission Date: 20200122
  Serious: No
  Sender: FDA-Public Use
  Company Number: US-BAYER-2019-216581

PATIENT
  Age: 17 Year
  Sex: Female

DRUGS (2)
  1. EOVIST [Suspect]
     Active Substance: GADOXETATE DISODIUM
     Indication: HEPATIC LESION
  2. EOVIST [Suspect]
     Active Substance: GADOXETATE DISODIUM
     Indication: MAGNETIC RESONANCE IMAGING LIVER
     Dosage: UNK, ONCE
     Route: 042

REACTIONS (1)
  - Respiration abnormal [None]
